FAERS Safety Report 19454233 (Version 1)
Quarter: 2021Q2

REPORT INFORMATION
  Report Type: Spontaneous
  Country: US (occurrence: US)
  Receive Date: 20210623
  Receipt Date: 20210623
  Transmission Date: 20210717
  Serious: Yes (Hospitalization, Other)
  Sender: FDA-Public Use
  Company Number: US-HIKMA PHARMACEUTICALS USA INC.-US-H14001-21-02848

PATIENT
  Age: 69 Year
  Sex: Female
  Weight: 95.3 kg

DRUGS (4)
  1. LEUCOVORIN. [Suspect]
     Active Substance: LEUCOVORIN
     Indication: GALLBLADDER CANCER
     Route: 042
     Dates: start: 20210406, end: 20210503
  2. NIVOLUMAB [Concomitant]
     Active Substance: NIVOLUMAB
     Indication: GALLBLADDER CANCER
     Route: 042
     Dates: start: 20210406, end: 20210503
  3. FLUOROURACILE [Concomitant]
     Active Substance: FLUOROURACIL
     Indication: GALLBLADDER CANCER
     Route: 042
     Dates: start: 20210406, end: 20210503
  4. IRINOTECAN [Concomitant]
     Active Substance: IRINOTECAN
     Indication: GALLBLADDER CANCER
     Route: 042
     Dates: start: 20210406, end: 20210503

REACTIONS (5)
  - Pyrexia [Recovered/Resolved]
  - Pneumonitis [Recovered/Resolved]
  - Dyspnoea [Recovered/Resolved]
  - Cough [Recovered/Resolved]
  - Oxygen consumption increased [Recovered/Resolved]

NARRATIVE: CASE EVENT DATE: 20210429
